FAERS Safety Report 10735118 (Version 2)
Quarter: 2017Q1

REPORT INFORMATION
  Report Type: Spontaneous
  Country: US (occurrence: US)
  Receive Date: 20150125
  Receipt Date: 20170321
  Transmission Date: 20170428
  Serious: No
  Sender: FDA-Public Use
  Company Number: US-ASTRAZENECA-2015SE04450

PATIENT
  Sex: Male

DRUGS (9)
  1. PRILOSEC [Suspect]
     Active Substance: OMEPRAZOLE MAGNESIUM
     Dosage: DOSE AND FREQUENCY UNKNOWN
     Route: 048
  2. NEXIUM [Suspect]
     Active Substance: ESOMEPRAZOLE MAGNESIUM
     Indication: GASTROOESOPHAGEAL REFLUX DISEASE
     Dosage: 40.0MG UNKNOWN
     Route: 048
  3. NEXIUM [Suspect]
     Active Substance: ESOMEPRAZOLE MAGNESIUM
     Indication: GASTROOESOPHAGEAL REFLUX DISEASE
     Dosage: GENERIC UNKNOWN
     Route: 048
  4. NEXIUM [Suspect]
     Active Substance: ESOMEPRAZOLE MAGNESIUM
     Indication: GASTROOESOPHAGEAL REFLUX DISEASE
     Dosage: 40.0MG UNKNOWN
     Route: 048
  5. NEXIUM [Suspect]
     Active Substance: ESOMEPRAZOLE MAGNESIUM
     Indication: INFLAMMATORY BOWEL DISEASE
     Dosage: 40.0MG UNKNOWN
     Route: 048
  6. NEXIUM [Suspect]
     Active Substance: ESOMEPRAZOLE MAGNESIUM
     Indication: INFLAMMATORY BOWEL DISEASE
     Dosage: GENERIC UNKNOWN
     Route: 048
  7. NEXIUM [Suspect]
     Active Substance: ESOMEPRAZOLE MAGNESIUM
     Indication: INFLAMMATORY BOWEL DISEASE
     Dosage: 40.0MG UNKNOWN
     Route: 048
  8. NEXIUM 24HR [Suspect]
     Active Substance: ESOMEPRAZOLE MAGNESIUM
     Dosage: DOSE AND FREQUENCY UNKNOWN
     Route: 048
  9. PRILOSEC OTC [Suspect]
     Active Substance: OMEPRAZOLE MAGNESIUM
     Dosage: DOSE AND FREQUENCY UNKNOWN
     Route: 048

REACTIONS (12)
  - Malaise [Unknown]
  - Eructation [Unknown]
  - Drug dose omission [Unknown]
  - Product use issue [Unknown]
  - Dyspepsia [Unknown]
  - Intentional product use issue [Unknown]
  - Product formulation issue [Unknown]
  - Drug ineffective [Unknown]
  - Product substitution issue [Unknown]
  - Off label use [Unknown]
  - Diarrhoea [Unknown]
  - Dysgeusia [Unknown]
